FAERS Safety Report 8014403-X (Version None)
Quarter: 2011Q4

REPORT INFORMATION
  Report Type: 
  Country: None (occurrence: None)
  Receive Date: 20111229
  Receipt Date: 20111220
  Transmission Date: 20120403
  Serious: Yes (Hospitalization, Other)
  Sender: FDA-Public Use
  Company Number: US-ELI_LILLY_AND_COMPANY-US201112006730

PATIENT
  Sex: Male

DRUGS (16)
  1. ABILIFY [Concomitant]
     Indication: AFFECTIVE DISORDER
     Dosage: 5 MG, QD
  2. SIMVASTATIN [Concomitant]
     Indication: BLOOD CHOLESTEROL
     Dosage: 80 MG, QD
  3. CYMBALTA [Suspect]
     Indication: FIBROMYALGIA
     Dosage: 120 MG, QD
  4. NORVASC [Concomitant]
     Indication: HYPERTENSION
     Dosage: UNK, QD
  5. OXYBUTYNIN [Concomitant]
     Indication: HYPERTONIC BLADDER
     Dosage: 10 MG, QD
  6. LUMIGAN [Concomitant]
     Indication: GLAUCOMA
     Route: 047
  7. HYDROCODONE [Concomitant]
     Indication: PAIN
     Dosage: UNK, PRN
  8. TRIAMTERENE AND HYDROCHLOROTHIAZIDE [Concomitant]
     Indication: DIURETIC THERAPY
     Dosage: 1 DF, QD
  9. MIRTAZAPINE [Concomitant]
     Dosage: 45 MG, QD
  10. STOOL SOFTENER [Concomitant]
     Dosage: UNK, QD
  11. ATENOLOL [Concomitant]
     Indication: HYPERTENSION
     Dosage: 100 MG, QD
  12. VALIUM [Concomitant]
     Dosage: 10 MG, QD
  13. PLAVIX [Concomitant]
     Indication: TRANSIENT ISCHAEMIC ATTACK
  14. GABAPENTIN [Concomitant]
     Indication: PAIN
     Dosage: 800 MG, QD
  15. LISINOPRIL [Concomitant]
     Indication: HYPERTENSION
     Dosage: 40 MG, QD
  16. FLUOXETINE [Concomitant]
     Dosage: 80 MG, QD

REACTIONS (4)
  - MULTIPLE SCLEROSIS [None]
  - HYPERGLYCAEMIA [None]
  - ABDOMINAL PAIN [None]
  - PANCREATITIS [None]
